FAERS Safety Report 4598101-0 (Version None)
Quarter: 2005Q1

REPORT INFORMATION
  Report Type: 
  Country: None (occurrence: None)
  Receive Date: 20050302
  Receipt Date: 20050217
  Transmission Date: 20050727
  Serious: Yes (Other)
  Sender: FDA-Public Use
  Company Number: 2005-01-1024

PATIENT
  Age: 63 Year
  Sex: Male

DRUGS (12)
  1. CLARITIN [Suspect]
     Indication: PRURITUS GENERALISED
     Dosage: 20 MG ORAL
     Route: 048
     Dates: start: 20041026, end: 20041118
  2. CLARITIN [Suspect]
     Indication: SWELLING FACE
     Dosage: 20 MG ORAL
     Route: 048
     Dates: start: 20041026, end: 20041118
  3. POLARAMINE [Suspect]
     Indication: PRURITUS GENERALISED
     Dosage: 12 MG ORAL
     Route: 048
     Dates: start: 20041026
  4. POLARAMINE [Suspect]
     Indication: SWELLING FACE
     Dosage: 12 MG ORAL
     Route: 048
     Dates: start: 20041026
  5. TOUGHMAC E [Suspect]
     Dosage: ORAL
     Route: 048
     Dates: start: 20041026
  6. CAMOSTAT MESYLATE [Suspect]
     Dosage: ORAL
     Route: 048
     Dates: start: 20041026
  7. POLARAMINE [Suspect]
     Indication: PRURITUS GENERALISED
     Dosage: 1 AMPULE INTRAVENOUS
     Route: 042
     Dates: start: 20041026
  8. POLARAMINE [Suspect]
     Indication: SWELLING FACE
     Dosage: 1 AMPULE INTRAVENOUS
     Route: 042
     Dates: start: 20041026
  9. STRONGER NEO MINOPHAGEN C [Suspect]
     Indication: PRURITUS GENERALISED
     Dosage: 1 AMPULE INTRAVENOUS
     Route: 042
     Dates: start: 20041026
  10. STRONGER NEO MINOPHAGEN C [Suspect]
     Indication: SWELLING FACE
     Dosage: 1 AMPULE INTRAVENOUS
     Route: 042
     Dates: start: 20041026
  11. TATHION [Suspect]
     Indication: PRURITUS GENERALISED
     Dosage: 1 AMPULE
     Dates: start: 20041026, end: 20041026
  12. TATHION [Suspect]
     Indication: SWELLING FACE
     Dosage: 1 AMPULE
     Dates: start: 20041026, end: 20041026

REACTIONS (1)
  - ALOPECIA [None]
